FAERS Safety Report 25719418 (Version 1)
Quarter: 2025Q3

REPORT INFORMATION
  Report Type: Report from Study
  Country: US (occurrence: US)
  Receive Date: 20250824
  Receipt Date: 20250824
  Transmission Date: 20251021
  Serious: Yes (Hospitalization, Other)
  Sender: ABBVIE
  Company Number: US-ABBVIE-6428894

PATIENT
  Age: 38 Year
  Sex: Female

DRUGS (1)
  1. SKYRIZI [Suspect]
     Active Substance: RISANKIZUMAB-RZAA
     Indication: Product used for unknown indication
     Route: 058
     Dates: start: 202502

REACTIONS (6)
  - Crohn^s disease [Not Recovered/Not Resolved]
  - Sepsis [Unknown]
  - Nephrolithiasis [Unknown]
  - Cerebrovascular accident [Unknown]
  - Surgery [Unknown]
  - Paralysis [Unknown]

NARRATIVE: CASE EVENT DATE: 20250101
